FAERS Safety Report 9250851 (Version 1)
Quarter: 2013Q1

REPORT INFORMATION
  Report Type: Spontaneous
  Country: US (occurrence: None)
  Receive Date: 20130305
  Receipt Date: 20130305
  Transmission Date: 20140127
  Serious: Yes (Other)
  Sender: FDA-Public Use
  Company Number: 163-21880-12090263

PATIENT
  Age: 76 Year
  Sex: Male
  Weight: 99.79 kg

DRUGS (4)
  1. REVLIMID (LENALIDOMIDE) (CAPSULES) [Suspect]
     Indication: PLASMA CELL MYELOMA
     Dosage: 1 IN 1 D
     Route: 048
     Dates: start: 20110122
  2. DOXYCYCLINE (DOXYCYCLINE) [Suspect]
  3. ACETAMINOPHEN\OXYCODONE HYDROCHLORIDE [Suspect]
  4. PHENERGAN (PROMETHAZINE) [Suspect]

REACTIONS (5)
  - Joint swelling [None]
  - Dizziness [None]
  - Blood potassium decreased [None]
  - Local swelling [None]
  - Thrombosis [None]
